FAERS Safety Report 10973331 (Version 1)
Quarter: 2015Q1

REPORT INFORMATION
  Report Type: Spontaneous
  Country: US (occurrence: None)
  Receive Date: 20150331
  Receipt Date: 20150331
  Transmission Date: 20150721
  Serious: Yes (Other)
  Sender: FDA-Public Use
  Company Number: None

PATIENT
  Age: 66 Year
  Sex: Male
  Weight: 102.06 kg

DRUGS (11)
  1. RITUXIMAB [Suspect]
     Active Substance: RITUXIMAB
     Indication: CHRONIC LYMPHOCYTIC LEUKAEMIA
     Dosage: INTO A VEIN
     Dates: start: 20150329, end: 20150329
  2. ASPIRIN. [Concomitant]
     Active Substance: ASPIRIN
  3. OMPERAZOLE [Concomitant]
     Active Substance: OMEPRAZOLE
  4. PRAVASTATIN [Concomitant]
     Active Substance: PRAVASTATIN\PRAVASTATIN SODIUM
  5. FLUDARABINE [Suspect]
     Active Substance: FLUDARABINE PHOSPHATE
  6. VITAMIN D-3 [Concomitant]
  7. BUTALBITAL [Concomitant]
     Active Substance: BUTALBITAL
  8. ASTELIN [Concomitant]
     Active Substance: AZELASTINE HYDROCHLORIDE
  9. VITAMIN C [Concomitant]
     Active Substance: ASCORBIC ACID
  10. VITAMIN B12 [Concomitant]
     Active Substance: CYANOCOBALAMIN
  11. PROBIOITIC [Concomitant]

REACTIONS (5)
  - Blood pressure decreased [None]
  - Flushing [None]
  - Back pain [None]
  - Abdominal pain [None]
  - Arthralgia [None]

NARRATIVE: CASE EVENT DATE: 20150329
